FAERS Safety Report 11211199 (Version 1)
Quarter: 2015Q2

REPORT INFORMATION
  Report Type: Spontaneous
  Country: DE (occurrence: DE)
  Receive Date: 20150623
  Receipt Date: 20150623
  Transmission Date: 20150821
  Serious: Yes (Life-Threatening, Hospitalization, Other)
  Sender: FDA-Public Use
  Company Number: DE-ROCHE-1563941

PATIENT
  Sex: Female

DRUGS (11)
  1. ANAKINRA [Concomitant]
     Active Substance: ANAKINRA
     Indication: JUVENILE IDIOPATHIC ARTHRITIS
     Route: 065
     Dates: start: 201307, end: 201503
  2. AMLODIPIN [Concomitant]
     Active Substance: AMLODIPINE BESYLATE
     Route: 065
  3. DEKRISTOL [Concomitant]
     Active Substance: CHOLECALCIFEROL
     Route: 065
  4. ARCOXIA [Concomitant]
     Active Substance: ETORICOXIB
     Route: 065
  5. PANTOPRAZOLE [Concomitant]
     Active Substance: PANTOPRAZOLE SODIUM
     Route: 065
  6. ONDANSETRON [Concomitant]
     Active Substance: ONDANSETRON
     Route: 042
  7. ROACTEMRA [Suspect]
     Active Substance: TOCILIZUMAB
     Indication: JUVENILE IDIOPATHIC ARTHRITIS
     Route: 042
     Dates: start: 20150206, end: 20150409
  8. ROACTEMRA [Suspect]
     Active Substance: TOCILIZUMAB
     Dosage: THERAPY RESTARTED
     Route: 042
  9. PREDNISOLON [Concomitant]
     Active Substance: PREDNISOLONE
     Indication: JUVENILE IDIOPATHIC ARTHRITIS
     Route: 048
  10. COLCHICUM [Concomitant]
     Active Substance: COLCHICINE
     Indication: JUVENILE IDIOPATHIC ARTHRITIS
     Route: 048
     Dates: start: 201407
  11. CANDESARTAN [Concomitant]
     Active Substance: CANDESARTAN
     Route: 065

REACTIONS (10)
  - Headache [Recovering/Resolving]
  - Hypersensitivity [Recovering/Resolving]
  - Chest pain [Recovering/Resolving]
  - Shock [Recovering/Resolving]
  - Pallor [Recovering/Resolving]
  - Hypertension [Unknown]
  - Chills [Recovering/Resolving]
  - Tachycardia [Recovering/Resolving]
  - Nausea [Unknown]
  - Headache [Unknown]

NARRATIVE: CASE EVENT DATE: 201503
